FAERS Safety Report 6048247-5 (Version None)
Quarter: 2009Q1

REPORT INFORMATION
  Report Type: 
  Country: None (occurrence: None)
  Receive Date: 20090123
  Receipt Date: 20090120
  Transmission Date: 20090719
  Serious: Yes (Hospitalization)
  Sender: FDA-Public Use
  Company Number: US-BRISTOL-MYERS SQUIBB COMPANY-14477061

PATIENT
  Age: 48 Year
  Sex: Female
  Weight: 77 kg

DRUGS (4)
  1. ABILIFY [Suspect]
     Indication: BIPOLAR DISORDER
     Dosage: DOSE TITRATED TO 10 MG (PER USUAL PROTOCOL) AND WAS TAKING FOR 1 MONTH
     Dates: start: 20081001
  2. LEXAPRO [Concomitant]
  3. TRAZODONE HCL [Concomitant]
  4. LUNESTA [Concomitant]

REACTIONS (1)
  - ACUTE INTERSTITIAL PNEUMONITIS [None]
